FAERS Safety Report 13780032 (Version 2)
Quarter: 2017Q3

REPORT INFORMATION
  Report Type: Spontaneous
  Country: FR (occurrence: FR)
  Receive Date: 20170723
  Receipt Date: 20170814
  Transmission Date: 20171127
  Serious: Yes (Hospitalization)
  Sender: FDA-Public Use
  Company Number: FR-ROCHE-1962022

PATIENT
  Age: 50 Year
  Sex: Male

DRUGS (8)
  1. DILANTIN [Suspect]
     Active Substance: PHENYTOIN
     Indication: EPILEPSY
     Route: 042
     Dates: start: 20170605, end: 20170606
  2. HALDOL [Concomitant]
     Active Substance: HALOPERIDOL
     Dosage: IN THE EVENING
     Route: 065
  3. HEPARIN [Concomitant]
     Active Substance: HEPARIN SODIUM
  4. KEPPRA [Concomitant]
     Active Substance: LEVETIRACETAM
     Dosage: MORNING AND EVENING
     Route: 065
  5. PRODILANTIN [Suspect]
     Active Substance: FOSPHENYTOIN SODIUM
     Indication: EPILEPSY
     Route: 042
     Dates: start: 20170605
  6. VALIUM [Concomitant]
     Active Substance: DIAZEPAM
     Dosage: 10MG/ML 5 DROPS IN THE EVENING
     Route: 065
  7. ASPIRIN. [Concomitant]
     Active Substance: ASPIRIN
  8. RIVOTRIL [Suspect]
     Active Substance: CLONAZEPAM
     Indication: EPILEPSY
     Dosage: 1MG/1ML
     Route: 042
     Dates: start: 20170605

REACTIONS (1)
  - Liver function test abnormal [Recovered/Resolved]

NARRATIVE: CASE EVENT DATE: 20170606
